FAERS Safety Report 10693965 (Version 1)
Quarter: 2015Q1

REPORT INFORMATION
  Report Type: Spontaneous
  Country: US (occurrence: US)
  Receive Date: 20150106
  Receipt Date: 20150106
  Transmission Date: 20150721
  Serious: No
  Sender: FDA-Public Use
  Company Number: US-PFIZER INC-2015000032

PATIENT
  Sex: Female

DRUGS (1)
  1. ADVIL [Suspect]
     Active Substance: IBUPROFEN
     Dosage: 2 DOSAGE FORMS, EVERY 4 HRS

REACTIONS (5)
  - Activities of daily living impaired [Unknown]
  - Gait disturbance [Unknown]
  - Headache [Unknown]
  - Nasopharyngitis [Unknown]
  - Nausea [Unknown]
